FAERS Safety Report 8465312-3 (Version None)
Quarter: 2012Q2

REPORT INFORMATION
  Report Type: 
  Country: None (occurrence: None)
  Receive Date: 20120626
  Receipt Date: 20120619
  Transmission Date: 20120825
  Serious: Yes (Other)
  Sender: FDA-Public Use
  Company Number: DE-PFIZER INC-2012142952

PATIENT

DRUGS (1)
  1. LYRICA [Suspect]

REACTIONS (3)
  - FALL [None]
  - DIZZINESS [None]
  - FRACTURE [None]
